FAERS Safety Report 9988076 (Version 1)
Quarter: 2014Q1

REPORT INFORMATION
  Report Type: Spontaneous
  Country: US (occurrence: US)
  Receive Date: 20140308
  Receipt Date: 20140308
  Transmission Date: 20141002
  Serious: No
  Sender: FDA-Public Use
  Company Number: US-009507513-1403USA001726

PATIENT
  Sex: Male
  Weight: 103.4 kg

DRUGS (7)
  1. VICTRELIS [Suspect]
     Dosage: 4 DF, TID, 4 CAPS BY MOUTH
     Route: 048
     Dates: start: 20131208, end: 20140206
  2. PEGASYS [Suspect]
  3. REBETOL [Suspect]
  4. TRAMADOL HYDROCHLORIDE [Concomitant]
  5. TRAZODONE HYDROCHLORIDE [Concomitant]
  6. AMBIEN [Concomitant]
  7. VITAMINS (UNSPECIFIED) [Concomitant]

REACTIONS (3)
  - Dry skin [Unknown]
  - Pruritus [Unknown]
  - Nausea [Unknown]
